FAERS Safety Report 4626759-6 (Version None)
Quarter: 2005Q2

REPORT INFORMATION
  Report Type: 
  Country: None (occurrence: None)
  Receive Date: 20050405
  Receipt Date: 20050325
  Transmission Date: 20051028
  Serious: Yes (Death, Disabling)
  Sender: FDA-Public Use
  Company Number: PHBS2005IT04194

PATIENT
  Age: 59 Year
  Sex: Male

DRUGS (11)
  1. PANTOPRAZOLE SODIUM [Concomitant]
     Route: 065
  2. CARDIRENE [Concomitant]
     Route: 065
  3. SIVASTIN [Concomitant]
     Route: 065
  4. DILATREND [Concomitant]
     Route: 065
  5. MINITRAN [Concomitant]
     Route: 065
  6. CONTRAMAL [Concomitant]
     Route: 065
  7. MS CONTIN [Concomitant]
     Route: 065
  8. DURAGESIC-100 [Concomitant]
     Route: 065
  9. ZOMETA [Suspect]
     Indication: METASTASES TO BONE
     Dosage: UNK, UNK
     Route: 042
     Dates: start: 20040519, end: 20041203
  10. RADIOTHERAPY [Concomitant]
     Dosage: 72 GY
  11. CHEMOTHERAPEUTICS,OTHER [Concomitant]

REACTIONS (2)
  - DEATH [None]
  - TOOTH ABSCESS [None]
